FAERS Safety Report 26077727 (Version 1)
Quarter: 2025Q4

REPORT INFORMATION
  Report Type: Spontaneous
  Country: EU (occurrence: EU)
  Receive Date: 20251122
  Receipt Date: 20251122
  Transmission Date: 20260117
  Serious: Yes (Hospitalization)
  Sender: TEVA
  Company Number: None

PATIENT
  Age: 73 Year
  Sex: Female
  Weight: 110 kg

DRUGS (4)
  1. SPIRONOLACTONE [Suspect]
     Active Substance: SPIRONOLACTONE
     Indication: Product used for unknown indication
     Route: 048
     Dates: start: 2021
  2. BISOPROLOL FUMARATE\HYDROCHLOROTHIAZIDE [Suspect]
     Active Substance: BISOPROLOL FUMARATE\HYDROCHLOROTHIAZIDE
     Indication: Product used for unknown indication
     Route: 048
     Dates: start: 2021
  3. CRESTOR [Suspect]
     Active Substance: ROSUVASTATIN CALCIUM
     Indication: Product used for unknown indication
     Dosage: 1
     Route: 048
     Dates: start: 2021
  4. LEVOTHYROXINE [Suspect]
     Active Substance: LEVOTHYROXINE
     Indication: Hypothyroidism
     Dosage: 150 OR 125 ?G ALTERNATELY, EVERY OTHER DAY, SCORED TABLET
     Route: 048
     Dates: start: 2021

REACTIONS (1)
  - Pemphigoid [Recovering/Resolving]

NARRATIVE: CASE EVENT DATE: 20250801
